FAERS Safety Report 9973312 (Version 1)
Quarter: 2014Q1

REPORT INFORMATION
  Report Type: Spontaneous
  Country: US (occurrence: None)
  Receive Date: 20140127
  Receipt Date: 20140127
  Transmission Date: 20141002
  Serious: Yes (Life-Threatening, Hospitalization)
  Sender: FDA-Public Use
  Company Number: 1222658

PATIENT
  Age: 45 Year
  Sex: Female
  Weight: 50.6 kg

DRUGS (4)
  1. RITUXAN [Suspect]
     Indication: RHEUMATOID ARTHRITIS
     Route: 042
     Dates: start: 20130410, end: 20130425
  2. SOLU-MEDROL (METHYLPREDNISOLONE SODIUM SUCCINATE) [Concomitant]
  3. EPINEPHRINE (EPINEPHRINE) [Concomitant]
  4. BENADRYL (UNITED STATES) (DIPHENHYDRAMINE HYDRCHLORIDE) [Concomitant]

REACTIONS (2)
  - Swollen tongue [None]
  - Infusion related reaction [None]
